FAERS Safety Report 6168720-9 (Version None)
Quarter: 2009Q2

REPORT INFORMATION
  Report Type: 
  Country: None (occurrence: None)
  Receive Date: 20090424
  Receipt Date: 20090424
  Transmission Date: 20091009
  Serious: Yes (Hospitalization)
  Sender: FDA-Public Use
  Company Number: None

PATIENT
  Age: 57 Year
  Sex: Male
  Weight: 55.8 kg

DRUGS (1)
  1. WARFARIN SODIUM [Suspect]
     Dates: start: 19990428

REACTIONS (5)
  - ABASIA [None]
  - HAEMOGLOBIN DECREASED [None]
  - HAEMORRHAGE [None]
  - INTERNATIONAL NORMALISED RATIO ABNORMAL [None]
  - PELVIC HAEMATOMA [None]
